FAERS Safety Report 10676450 (Version 2)
Quarter: 2016Q2

REPORT INFORMATION
  Report Type: Spontaneous
  Country: JP (occurrence: JP)
  Receive Date: 20141226
  Receipt Date: 20160401
  Transmission Date: 20160815
  Serious: Yes (Other)
  Sender: FDA-Public Use
  Company Number: JP-CIPLA LTD.-2014JP02913

PATIENT

DRUGS (7)
  1. UFT [Suspect]
     Active Substance: TEGAFUR\URACIL
     Indication: COLON CANCER METASTATIC
     Dosage: 600 MG/ BODY (DAY 3 TO 14, DAY 17 TO 28)
     Route: 065
     Dates: start: 200212
  2. BEVACIZUMAB [Suspect]
     Active Substance: BEVACIZUMAB
     Indication: COLON CANCER METASTATIC
     Dosage: 200 MG/M2, UNK
     Route: 065
  3. FLUOROURACIL. [Suspect]
     Active Substance: FLUOROURACIL
     Indication: COLON CANCER METASTATIC
     Dosage: UNK
     Route: 065
     Dates: start: 200702
  4. LEUCOVORIN. [Suspect]
     Active Substance: LEUCOVORIN
     Indication: COLON CANCER METASTATIC
     Dosage: UNK
     Route: 065
     Dates: start: 200702
  5. IRINOTECAN [Suspect]
     Active Substance: IRINOTECAN
     Indication: COLON CANCER METASTATIC
     Dosage: 240 MG, (ON DAY 1, 15)
     Route: 065
     Dates: start: 200212
  6. OXALIPLATIN. [Suspect]
     Active Substance: OXALIPLATIN
     Indication: COLON CANCER METASTATIC
     Dosage: UNK
     Route: 065
     Dates: start: 200702
  7. IRINOTECAN [Suspect]
     Active Substance: IRINOTECAN
     Dosage: 180 MG, UNK
     Route: 065

REACTIONS (7)
  - Malaise [None]
  - Neuropathy peripheral [Unknown]
  - Drug ineffective [Unknown]
  - Nausea [Unknown]
  - Disease recurrence [Unknown]
  - Fatigue [Unknown]
  - Vomiting [Unknown]
